FAERS Safety Report 17691677 (Version 2)
Quarter: 2020Q2

REPORT INFORMATION
  Report Type: Spontaneous
  Country: US (occurrence: US)
  Receive Date: 20200422
  Receipt Date: 20200430
  Transmission Date: 20200714
  Serious: Yes (Death, Life-Threatening, Hospitalization, Other)
  Sender: FDA-Public Use
  Company Number: US-IBIGEN-2020.08657

PATIENT
  Age: 59 Year
  Sex: Male

DRUGS (7)
  1. VANCOMYCIN [Suspect]
     Active Substance: VANCOMYCIN
     Indication: PNEUMONIA
     Dosage: FOR 5 DAYS AT FIRST ADMISSION AND THEN FOR 3 MORE DAYS; FOR 2 DAYS AT SECOND ADMISSION
     Route: 042
  2. DAPSONE. [Concomitant]
     Active Substance: DAPSONE
     Indication: LINEAR IGA DISEASE
  3. PREDNISONE. [Concomitant]
     Active Substance: PREDNISONE
     Indication: LINEAR IGA DISEASE
     Route: 048
  4. MEROPENEM. [Concomitant]
     Active Substance: MEROPENEM
     Indication: PSEUDOMONAS INFECTION
     Route: 042
  5. PIPERACILLIN/TAZOBACTAM [Suspect]
     Active Substance: PIPERACILLIN SODIUM\TAZOBACTAM SODIUM
     Indication: PNEUMONIA
     Dosage: FOR 5 DAYS AT FIRST ADMISSION AND THEN FOR 3 MORE DAYS; FOR 2 DAYS AT SECOND ADMISSION
     Route: 042
  6. VALACYCLOVIR [Concomitant]
     Active Substance: VALACYCLOVIR HYDROCHLORIDE
     Indication: EVIDENCE BASED TREATMENT
  7. TOBRAMYCIN. [Concomitant]
     Active Substance: TOBRAMYCIN
     Indication: PSEUDOMONAS INFECTION

REACTIONS (13)
  - Haemoglobin decreased [Unknown]
  - Infection [Fatal]
  - Red blood cell count decreased [Unknown]
  - Hypernatraemia [Unknown]
  - Leukocytosis [Unknown]
  - Tachycardia [Unknown]
  - Pyrexia [Unknown]
  - Oxygen saturation decreased [Unknown]
  - Rash vesicular [Unknown]
  - Respiratory rate increased [Unknown]
  - Linear IgA disease [Fatal]
  - Septic shock [Fatal]
  - Heart rate increased [Unknown]
